FAERS Safety Report 19399980 (Version 6)
Quarter: 2024Q3

REPORT INFORMATION
  Report Type: Report from Study
  Country: DE (occurrence: DE)
  Receive Date: 20210610
  Receipt Date: 20240829
  Transmission Date: 20241017
  Serious: Yes (Other)
  Sender: TAKEDA
  Company Number: DE-TAKEDA-2021TUS034724

PATIENT
  Age: 48 Year
  Sex: Male

DRUGS (23)
  1. TEDUGLUTIDE [Suspect]
     Active Substance: TEDUGLUTIDE
     Indication: Short-bowel syndrome
     Dosage: 3.7 MILLIGRAM, QD
     Route: 042
     Dates: start: 20150903, end: 20170316
  2. TEDUGLUTIDE [Suspect]
     Active Substance: TEDUGLUTIDE
     Indication: Short-bowel syndrome
     Dosage: 3.7 MILLIGRAM, QD
     Route: 042
     Dates: start: 20150903, end: 20170316
  3. TEDUGLUTIDE [Suspect]
     Active Substance: TEDUGLUTIDE
     Indication: Short-bowel syndrome
     Dosage: 3.7 MILLIGRAM, QD
     Route: 042
     Dates: start: 20150903, end: 20170316
  4. TEDUGLUTIDE [Suspect]
     Active Substance: TEDUGLUTIDE
     Indication: Short-bowel syndrome
     Dosage: 3.7 MILLIGRAM, QD
     Route: 042
     Dates: start: 20150903, end: 20170316
  5. TEDUGLUTIDE [Suspect]
     Active Substance: TEDUGLUTIDE
     Dosage: 3.7 MILLIGRAM, QD
     Route: 042
     Dates: start: 20170505
  6. TEDUGLUTIDE [Suspect]
     Active Substance: TEDUGLUTIDE
     Dosage: 3.7 MILLIGRAM, QD
     Route: 042
     Dates: start: 20170505
  7. TEDUGLUTIDE [Suspect]
     Active Substance: TEDUGLUTIDE
     Dosage: 3.7 MILLIGRAM, QD
     Route: 042
     Dates: start: 20170505
  8. TEDUGLUTIDE [Suspect]
     Active Substance: TEDUGLUTIDE
     Dosage: 3.7 MILLIGRAM, QD
     Route: 042
     Dates: start: 20170505
  9. GLUTAMINE [Concomitant]
     Active Substance: GLUTAMINE
     Indication: Vitamin B complex deficiency
     Dosage: 999 MILLIGRAM, QD
     Route: 048
     Dates: start: 20190618
  10. DEXFOSFOSERINE [Concomitant]
     Active Substance: DEXFOSFOSERINE
     Indication: Vitamin B complex deficiency
     Dosage: 999 MILLIGRAM, QD
     Route: 048
     Dates: start: 20190618
  11. VITAMIN K [Concomitant]
     Active Substance: PHYTONADIONE
     Indication: Vitamin K deficiency
     Dosage: 5 GTT DROPS, QD
     Route: 048
     Dates: start: 20210913, end: 20221102
  12. VITAMIN B12 [Concomitant]
     Active Substance: CYANOCOBALAMIN
     Indication: Vitamin B12 deficiency
     Dosage: UNK UNK, MONTHLY
     Route: 058
     Dates: start: 20210302
  13. ZINC OROTATE [Concomitant]
     Active Substance: ZINC OROTATE
     Indication: Zinc deficiency
     Dosage: UNK UNK, QD
     Route: 048
     Dates: start: 20210913
  14. D3 VICOTRAT [Concomitant]
  15. PANCRELIPASE [Concomitant]
     Active Substance: PANCRELIPASE\PANCRELIPASE AMYLASE\PANCRELIPASE LIPASE\PANCRELIPASE PROTEASE
     Dosage: UNK UNK, BID
  16. COLESEVELAM HYDROCHLORIDE [Concomitant]
     Active Substance: COLESEVELAM HYDROCHLORIDE
     Dosage: UNK UNK, BID
  17. MAGNESIUM [Concomitant]
     Active Substance: MAGNESIUM
     Dosage: UNK UNK, QD
  18. ALLE [Concomitant]
     Dosage: UNK
  19. POTASSIUM IODIDE [Concomitant]
     Active Substance: POTASSIUM IODIDE
     Dosage: 100 MICROGRAM, QD
     Route: 065
  20. CALCIUM CARBONATE\CHOLECALCIFEROL [Concomitant]
     Active Substance: CALCIUM CARBONATE\CHOLECALCIFEROL
     Dosage: UNK
  21. PROLIA [Concomitant]
     Active Substance: DENOSUMAB
     Dosage: 60 MILLIGRAM
     Route: 065
  22. DROPIZOL [Concomitant]
     Indication: Vitamin D deficiency
     Dosage: 10 GTT DROPS, BID
     Route: 048
     Dates: start: 20221102
  23. MAGNESIUM [Concomitant]
     Active Substance: MAGNESIUM
     Indication: Vitamin B complex deficiency
     Dosage: 300 MILLIGRAM, QD
     Route: 048
     Dates: start: 20220505

REACTIONS (2)
  - Hydronephrosis [Recovered/Resolved]
  - Benign prostatic hyperplasia [Not Recovered/Not Resolved]

NARRATIVE: CASE EVENT DATE: 20210101
